FAERS Safety Report 17565130 (Version 3)
Quarter: 2020Q1

REPORT INFORMATION
  Report Type: Report from Study
  Country: MX (occurrence: MX)
  Receive Date: 20200320
  Receipt Date: 20200327
  Transmission Date: 20200409
  Serious: Yes (Life-Threatening, Other)
  Sender: FDA-Public Use
  Company Number: NVSC2020MX078830

PATIENT
  Age: 44 Year
  Sex: Male
  Weight: 78 kg

DRUGS (6)
  1. GALVUS MET [Suspect]
     Active Substance: METFORMIN HYDROCHLORIDE\VILDAGLIPTIN
     Indication: DIABETES MELLITUS
  2. EXFORGE HCT [Suspect]
     Active Substance: AMLODIPINE BESYLATE\HYDROCHLOROTHIAZIDE\VALSARTAN
     Indication: HYPERTENSION
     Dosage: 1 DF ((160/5/12.5), BID (ONE AT DAY AND IN NIGHT) (STARTED 1 AND 1/2 YEARS AGO)
     Route: 048
  3. GLIBENCLAMIDE [Concomitant]
     Active Substance: GLYBURIDE
     Indication: BLOOD GLUCOSE INCREASED
     Dosage: 5 MG, BID (ONE AFTER LUNCH AND ANOTHER ONE AT NIGHT)
     Route: 048
  4. METOPROLOL. [Concomitant]
     Active Substance: METOPROLOL
     Indication: HEART RATE ABNORMAL
     Dosage: 0.5 DF, BID (MORNING AND NIGHT)
     Route: 048
     Dates: start: 20180919
  5. GALVUS MET [Suspect]
     Active Substance: METFORMIN HYDROCHLORIDE\VILDAGLIPTIN
     Indication: BLOOD GLUCOSE INCREASED
     Dosage: 1 DF, BID (ONE AFTER LUNCH AND ANOTHER ONE AT NIGHT) (STARTED 2 YEARSA AGO)
     Route: 048
  6. CAPTOPRIL. [Concomitant]
     Active Substance: CAPTOPRIL
     Indication: BLOOD PRESSURE INCREASED
     Dosage: 25 MG, TID
     Route: 048
     Dates: start: 20180919

REACTIONS (17)
  - Retinal detachment [Unknown]
  - Facial paralysis [Recovered/Resolved]
  - Nausea [Not Recovered/Not Resolved]
  - Vomiting [Not Recovered/Not Resolved]
  - Anxiety [Not Recovered/Not Resolved]
  - Fatigue [Not Recovered/Not Resolved]
  - Hypertension [Unknown]
  - Dysphemia [Unknown]
  - Diabetic retinopathy [Unknown]
  - Inappropriate schedule of product administration [Unknown]
  - Blindness unilateral [Not Recovered/Not Resolved]
  - Musculoskeletal stiffness [Recovered/Resolved]
  - Body temperature abnormal [Not Recovered/Not Resolved]
  - Hypertensive crisis [Unknown]
  - Speech disorder [Unknown]
  - Blood pressure increased [Unknown]
  - Cerebral haemorrhage [Recovered/Resolved with Sequelae]

NARRATIVE: CASE EVENT DATE: 20180919
